FAERS Safety Report 7347501-4 (Version None)
Quarter: 2011Q1

REPORT INFORMATION
  Report Type: 
  Country: None (occurrence: None)
  Receive Date: 20110303
  Receipt Date: 20110221
  Transmission Date: 20110831
  Serious: Yes (Hospitalization)
  Sender: FDA-Public Use
  Company Number: 028096

PATIENT
  Age: 63 Year
  Sex: Male

DRUGS (5)
  1. BAKTAR [Concomitant]
  2. PHENYTOIN [Concomitant]
  3. KEPPRA [Suspect]
     Indication: EPILEPSY
     Dosage: 500 MG BID ORAL
     Route: 048
     Dates: start: 20110214, end: 20110221
  4. AMBISOME [Concomitant]
  5. PREDNISOLONE [Concomitant]

REACTIONS (2)
  - PANCYTOPENIA [None]
  - DRUG ERUPTION [None]
